FAERS Safety Report 22181578 (Version 2)
Quarter: 2023Q2

REPORT INFORMATION
  Report Type: Spontaneous
  Country: GR (occurrence: GR)
  Receive Date: 20230406
  Receipt Date: 20230517
  Transmission Date: 20230722
  Serious: No
  Sender: FDA-Public Use
  Company Number: GR-PFIZER INC-PV202300055210

PATIENT
  Age: 4 Year
  Sex: Female
  Weight: 13 kg

DRUGS (3)
  1. GENOTROPIN [Suspect]
     Active Substance: SOMATROPIN
     Indication: Short stature
     Dosage: 0.5 MG, DAILY/6 DAYS
     Route: 058
     Dates: start: 202303
  2. GENOTROPIN [Concomitant]
     Active Substance: SOMATROPIN
     Indication: Short stature
     Dosage: 0.5 MG, DAILY/6 DAYS/5.3 MG PEN
     Route: 058
     Dates: start: 202303
  3. MEDITHYROX [Concomitant]
     Dosage: UNK, DAILY (12MG + 25MG DAILY EXCEPT FOR SUNDAY WHEN THEY PATIENT RECEIVES ONLY 25MG)

REACTIONS (3)
  - Wrong technique in device usage process [Unknown]
  - Device leakage [Unknown]
  - Poor quality device used [Unknown]
